FAERS Safety Report 13576994 (Version 1)
Quarter: 2017Q2

REPORT INFORMATION
  Report Type: Spontaneous
  Country: US (occurrence: US)
  Receive Date: 20170524
  Receipt Date: 20170524
  Transmission Date: 20170830
  Serious: Yes (Other)
  Sender: FDA-Public Use
  Company Number: US-HERITAGE PHARMACEUTICALS-2017HTG00120

PATIENT
  Age: 66 Year
  Sex: Male

DRUGS (3)
  1. R-CHOP [Suspect]
     Active Substance: CYCLOPHOSPHAMIDE\DOXORUBICIN\PREDNISONE\RITUXIMAB\VINCRISTINE
     Indication: B-CELL LYMPHOMA
     Route: 065
  2. ACYCLOVIR. [Suspect]
     Active Substance: ACYCLOVIR
     Route: 065
  3. TRIMETHOPRIM-SULFAMETHOXAZOLE [Concomitant]
     Active Substance: SULFAMETHOXAZOLE\TRIMETHOPRIM
     Route: 065

REACTIONS (2)
  - Immunosuppression [Unknown]
  - Pneumocystis jirovecii pneumonia [Unknown]

NARRATIVE: CASE EVENT DATE: 201304
